FAERS Safety Report 5070830-4 (Version None)
Quarter: 2006Q3

REPORT INFORMATION
  Report Type: 
  Country: None (occurrence: None)
  Receive Date: 20060804
  Receipt Date: 20060509
  Transmission Date: 20061208
  Serious: No
  Sender: FDA-Public Use
  Company Number: US-GLAXOSMITHKLINE-A0604773A

PATIENT
  Age: 62 Year
  Sex: Male

DRUGS (2)
  1. NICORETTE [Suspect]
  2. WELLBUTRIN [Suspect]
     Route: 048

REACTIONS (3)
  - DISTURBANCE IN ATTENTION [None]
  - INTENTIONAL DRUG MISUSE [None]
  - WEIGHT INCREASED [None]
